FAERS Safety Report 9328384 (Version 1)
Quarter: 2013Q2

REPORT INFORMATION
  Report Type: Spontaneous
  Country: US (occurrence: US)
  Receive Date: 20130604
  Receipt Date: 20130604
  Transmission Date: 20140414
  Serious: Yes (Other)
  Sender: FDA-Public Use
  Company Number: US-SANOFI-AVENTIS-2012SA049329

PATIENT
  Sex: Female

DRUGS (4)
  1. LANTUS [Suspect]
     Indication: TYPE 1 DIABETES MELLITUS
     Dosage: DOSE:13 UNIT(S)
     Route: 058
     Dates: start: 2008
  2. LANTUS [Suspect]
     Indication: TYPE 1 DIABETES MELLITUS
     Dosage: 9 UNITS AM AND 4.5 UNITS PM
     Route: 058
     Dates: end: 20120710
  3. LANTUS [Suspect]
     Indication: TYPE 1 DIABETES MELLITUS
     Dosage: 9 UNITS AM AND 4.5 UNITS PM
     Route: 058
     Dates: start: 20120711
  4. HUMALOG [Concomitant]

REACTIONS (1)
  - Hypoglycaemia [Not Recovered/Not Resolved]
